FAERS Safety Report 9900059 (Version 1)
Quarter: 2014Q1

REPORT INFORMATION
  Report Type: Spontaneous
  Country: US (occurrence: US)
  Receive Date: 20140214
  Receipt Date: 20140214
  Transmission Date: 20141002
  Serious: No
  Sender: FDA-Public Use
  Company Number: US-GILEAD-2014-0094222

PATIENT
  Age: 59 Year
  Sex: Female

DRUGS (3)
  1. SOVALDI [Suspect]
     Indication: CHRONIC HEPATITIS C
     Dosage: 400 MG, UNK
     Route: 065
     Dates: start: 20140204
  2. RIBAVIRIN [Concomitant]
     Indication: CHRONIC HEPATITIS C
  3. PEGINTERFERON [Concomitant]
     Indication: CHRONIC HEPATITIS C

REACTIONS (3)
  - Fibromyalgia [Unknown]
  - No therapeutic response [Unknown]
  - Constipation [Unknown]
